FAERS Safety Report 11685048 (Version 1)
Quarter: 2015Q4

REPORT INFORMATION
  Report Type: Spontaneous
  Country: US (occurrence: US)
  Receive Date: 20151030
  Receipt Date: 20151030
  Transmission Date: 20160304
  Serious: Yes (Other)
  Sender: FDA-Public Use
  Company Number: US-NEXUS PHARMA-000002

PATIENT
  Age: 62 Year
  Sex: Male
  Weight: 79 kg

DRUGS (5)
  1. MIDAZOLAM [Concomitant]
     Active Substance: MIDAZOLAM\MIDAZOLAM HYDROCHLORIDE
     Route: 042
     Dates: start: 20151016
  2. EPHEDRINE SULFATE NEXUS [Suspect]
     Active Substance: EPHEDRINE SULFATE
     Indication: HYPOTENSION
     Dosage: 50 MG/ML
     Route: 042
     Dates: start: 20151016, end: 20151016
  3. FENTANYL. [Concomitant]
     Active Substance: FENTANYL
     Dosage: RECEIVED AT 50 MCG (12:19) AND 100 MCG (13:01)
     Route: 042
     Dates: start: 20151016
  4. ROCURONIUM/ROCURONIUM BROMIDE [Concomitant]
     Route: 042
     Dates: start: 20151016
  5. PROPOFOL. [Concomitant]
     Active Substance: PROPOFOL
     Route: 042
     Dates: start: 20151016

REACTIONS (2)
  - Heart rate decreased [Recovered/Resolved]
  - Drug ineffective [Unknown]

NARRATIVE: CASE EVENT DATE: 20151016
